FAERS Safety Report 9431835 (Version 1)
Quarter: 2013Q3

REPORT INFORMATION
  Report Type: Spontaneous
  Country: FR (occurrence: FR)
  Receive Date: 20130731
  Receipt Date: 20130731
  Transmission Date: 20140515
  Serious: Yes (Hospitalization)
  Sender: FDA-Public Use
  Company Number: PHHY2013FR080070

PATIENT
  Sex: Female

DRUGS (16)
  1. STALEVO [Suspect]
     Indication: PARKINSON^S DISEASE
     Dosage: UNK UKN, UNK
     Route: 048
     Dates: end: 201303
  2. STALEVO [Suspect]
     Dosage: UNK UKN, (REINTRODUCED)
     Dates: start: 201306
  3. STALEVO [Suspect]
     Dosage: UNK UKN, (DOSE INCREASED)
     Dates: start: 20130719, end: 20130720
  4. STALEVO [Suspect]
     Dosage: UNK UKN, (REINTRODUCED)
     Dates: start: 20130721, end: 20130724
  5. SIFROL [Suspect]
     Indication: PARKINSON^S DISEASE
     Dosage: UNK UKN, UNK
     Route: 048
     Dates: end: 201303
  6. SIFROL [Suspect]
     Dosage: UNK UKN, (REINTRODUCED)
     Dates: start: 201306
  7. SIFROL [Suspect]
     Dosage: UNK UKN, (DOSE INCREASED)
     Dates: start: 20130719, end: 20130720
  8. SIFROL [Suspect]
     Dosage: UNK UKN, (REINTRODUCED)
     Dates: start: 20130721, end: 20130724
  9. MODOPAR [Suspect]
     Indication: PARKINSON^S DISEASE
     Dosage: UNK UKN, UNK
     Route: 048
     Dates: end: 201303
  10. MODOPAR [Suspect]
     Dosage: UNK UKN, (REINTRODUCED)
     Dates: start: 201306
  11. MODOPAR [Suspect]
     Dosage: UNK (DOSE INCREASED)
     Dates: start: 20130719, end: 20130720
  12. MODOPAR [Suspect]
     Dosage: UNK UKN, (REINTRODUCED)
     Dates: start: 20130721, end: 20130724
  13. APOMORPHINE [Suspect]
     Dosage: UNK UKN, UNK
     Dates: start: 201303
  14. APOMORPHINE [Suspect]
     Dosage: UNK (DOSE INCREASED)
     Dates: start: 201306
  15. APOMORPHINE [Suspect]
     Dosage: UNK (REINTRODUCED)
     Dates: start: 20130724
  16. VELMETIA [Concomitant]
     Indication: DIABETES MELLITUS
     Dosage: TWICE DAILY
     Route: 048

REACTIONS (4)
  - Intestinal obstruction [Unknown]
  - Muscle spasms [Not Recovered/Not Resolved]
  - Weight decreased [Not Recovered/Not Resolved]
  - Withdrawal syndrome [Unknown]
